FAERS Safety Report 6933277-9 (Version None)
Quarter: 2010Q3

REPORT INFORMATION
  Report Type: 
  Country: None (occurrence: None)
  Receive Date: 20100818
  Receipt Date: 20100818
  Transmission Date: 20110219
  Serious: Yes (Hospitalization)
  Sender: FDA-Public Use
  Company Number: None

PATIENT
  Sex: Male
  Weight: 70.8 kg

DRUGS (13)
  1. GLEEVEC [Suspect]
     Indication: PROSTATE CANCER
     Dosage: 300MG QD PO
     Route: 048
     Dates: start: 20100602, end: 20100616
  2. SORAFENIB BAYER [Suspect]
     Indication: PROSTATE CANCER
     Dosage: 400 MG BID PO
     Route: 048
     Dates: start: 20100602, end: 20100618
  3. BUMEX [Concomitant]
  4. CAL CARB [Concomitant]
  5. CLONIDINE HCL [Concomitant]
  6. FINASTERIDE [Concomitant]
  7. LISINOPRIL [Concomitant]
  8. MEGACE [Concomitant]
  9. METOPROLOL SUCCINATE [Concomitant]
  10. M.V.I. [Concomitant]
  11. STOOL SOFTNER [Concomitant]
  12. ZANTAC [Concomitant]
  13. ZOCOR [Concomitant]

REACTIONS (5)
  - ABNORMAL DREAMS [None]
  - ASTHENIA [None]
  - ATRIAL FIBRILLATION [None]
  - DECREASED APPETITE [None]
  - INAPPROPRIATE ANTIDIURETIC HORMONE SECRETION [None]
